FAERS Safety Report 7367951-X (Version None)
Quarter: 2011Q1

REPORT INFORMATION
  Report Type: 
  Country: None (occurrence: None)
  Receive Date: 20110322
  Receipt Date: 20110317
  Transmission Date: 20110831
  Serious: Yes (Other)
  Sender: FDA-Public Use
  Company Number: CHPA2011US04155

PATIENT
  Age: 86 Year
  Sex: Female
  Weight: 86.168 kg

DRUGS (11)
  1. CEPHALEXIN [Concomitant]
     Indication: CYSTITIS
     Dosage: 250 MG, QD
     Route: 048
  2. EXCEDRIN (MIGRAINE) [Suspect]
     Indication: MIGRAINE
     Dosage: UNK, UNK
     Route: 048
  3. OCUVITE                            /01053801/ [Concomitant]
     Indication: VITAMIN SUPPLEMENTATION
     Dosage: 2 DF, QD
     Route: 048
     Dates: start: 19900101
  4. EXCEDRIN (MIGRAINE) [Suspect]
     Dosage: 1 DF, PRN
     Route: 048
     Dates: start: 20110315, end: 20110315
  5. PREMARIN [Concomitant]
     Indication: NIGHT SWEATS
     Dosage: .625 MG, QD
     Route: 048
  6. HYDRALAZINE [Concomitant]
     Indication: CARDIAC DISORDER
     Dosage: 50 MG, BID
     Route: 048
  7. AMITRIPTYLINE [Concomitant]
     Indication: FEELING OF RELAXATION
     Dosage: UNK, QHS
     Route: 048
  8. SYNTHROID [Concomitant]
     Indication: HYPOTHYROIDISM
     Dosage: .75 MG, QD
     Route: 048
     Dates: start: 19650101
  9. CALCIUM [Concomitant]
     Indication: MINERAL SUPPLEMENTATION
     Dosage: 1200 MG, QD
     Route: 048
  10. HYDRALAZINE [Concomitant]
     Indication: DIURETIC THERAPY
  11. DRUG THERAPY NOS [Concomitant]
     Dosage: 4 DF, QD
     Route: 048

REACTIONS (2)
  - INITIAL INSOMNIA [None]
  - MYOCARDIAL INFARCTION [None]
